FAERS Safety Report 4428639-8 (Version None)
Quarter: 2004Q3

REPORT INFORMATION
  Report Type: 
  Country: None (occurrence: None)
  Receive Date: 20040818
  Receipt Date: 20030725
  Transmission Date: 20050211
  Serious: No
  Sender: FDA-Public Use
  Company Number: US-BRISTOL-MYERS SQUIBB COMPANY-12335493

PATIENT
  Sex: Female
  Weight: 50 kg

DRUGS (4)
  1. TEQUIN [Suspect]
     Indication: KIDNEY INFECTION
     Route: 048
     Dates: start: 20030720
  2. HYDROCODONE [Concomitant]
  3. ALBUTEROL [Concomitant]
     Route: 055
  4. HYDROCORTISONE [Concomitant]
     Dates: start: 20030720

REACTIONS (1)
  - URINE AMPHETAMINE POSITIVE [None]
